FAERS Safety Report 9329617 (Version 1)
Quarter: 2013Q2

REPORT INFORMATION
  Report Type: Spontaneous
  Country: US (occurrence: US)
  Receive Date: 20130604
  Receipt Date: 20130604
  Transmission Date: 20140414
  Serious: No
  Sender: FDA-Public Use
  Company Number: US-SANOFI-AVENTIS-2013SA000455

PATIENT
  Sex: Male

DRUGS (2)
  1. LANTUS [Suspect]
     Indication: TYPE 2 DIABETES MELLITUS
     Dates: start: 201206
  2. METFORMIN [Concomitant]

REACTIONS (3)
  - Blood glucose increased [Unknown]
  - Incorrect storage of drug [Unknown]
  - Muscle atrophy [Unknown]
